FAERS Safety Report 7908173 (Version 3)
Quarter: 2013Q3

REPORT INFORMATION
  Report Type: Spontaneous
  Country: US (occurrence: US)
  Receive Date: 20110421
  Receipt Date: 20130812
  Transmission Date: 20140515
  Serious: Yes (Hospitalization)
  Sender: FDA-Public Use
  Company Number: US-B.I. PHARMACEUTICALS,INC./RIDGEFIELD-2011-BP-03764BP

PATIENT
  Age: 78 Year
  Sex: Male
  Weight: 80 kg

DRUGS (10)
  1. PRADAXA [Suspect]
     Indication: ATRIAL FIBRILLATION
     Dosage: 300 MG
     Route: 048
     Dates: start: 20110129, end: 20110204
  2. PRADAXA [Suspect]
     Indication: PROPHYLAXIS
  3. PLENDIL [Concomitant]
     Dosage: 10 MG
  4. ALLOPURINOL [Concomitant]
     Dosage: 300 MG
  5. PEPCID [Concomitant]
     Dosage: 20 MG
  6. LASIX [Concomitant]
     Dosage: 40 MG
  7. LIPITOR [Concomitant]
  8. ASA [Concomitant]
     Dosage: 81 MG
  9. VITAMIN D [Concomitant]
     Dosage: 2000 U
  10. MULTAQ [Concomitant]
     Dosage: 800 MG

REACTIONS (2)
  - Melaena [Not Recovered/Not Resolved]
  - Gastrointestinal haemorrhage [Recovered/Resolved]
